FAERS Safety Report 7545475-4 (Version None)
Quarter: 2011Q2

REPORT INFORMATION
  Report Type: 
  Country: None (occurrence: None)
  Receive Date: 20110614
  Receipt Date: 20110531
  Transmission Date: 20111010
  Serious: Yes (Hospitalization)
  Sender: FDA-Public Use
  Company Number: JP-JNJFOC-20101208854

PATIENT
  Age: 43 Year
  Sex: Male
  Weight: 64 kg

DRUGS (8)
  1. REMICADE [Suspect]
     Dosage: 17TH INFUSION
     Route: 042
     Dates: start: 20101012
  2. MIYA BM [Concomitant]
     Indication: CROHN'S DISEASE
     Route: 048
     Dates: start: 20080122
  3. REMICADE [Suspect]
     Route: 042
     Dates: start: 20080623
  4. ISONIAZID [Concomitant]
     Indication: ANTIBIOTIC PROPHYLAXIS
     Route: 048
     Dates: start: 20080521, end: 20081209
  5. REMICADE [Suspect]
     Indication: CROHN'S DISEASE
     Route: 042
     Dates: start: 20081209
  6. FAMOTIDINE [Concomitant]
     Indication: CROHN'S DISEASE
     Route: 048
     Dates: start: 20070508
  7. PYDOXAL [Concomitant]
     Indication: ANTIBIOTIC PROPHYLAXIS
     Route: 048
     Dates: start: 20080521, end: 20081209
  8. PENTASA [Concomitant]
     Indication: CROHN'S DISEASE
     Route: 048

REACTIONS (1)
  - TUBERCULOUS PLEURISY [None]
